FAERS Safety Report 9676482 (Version 2)
Quarter: 2013Q4

REPORT INFORMATION
  Report Type: Spontaneous
  Country: US (occurrence: US)
  Receive Date: 20131107
  Receipt Date: 20131129
  Transmission Date: 20140711
  Serious: No
  Sender: FDA-Public Use
  Company Number: US-PFIZER INC-2013313233

PATIENT
  Sex: 0

DRUGS (1)
  1. METHOTREXATE SODIUM [Suspect]
     Indication: ARTHRITIS
     Dosage: UNK
     Route: 058

REACTIONS (2)
  - Off label use [Unknown]
  - Product label issue [Unknown]
